FAERS Safety Report 4865478-8 (Version None)
Quarter: 2005Q4

REPORT INFORMATION
  Report Type: 
  Country: None (occurrence: None)
  Receive Date: 20051223
  Receipt Date: 20051214
  Transmission Date: 20060501
  Serious: Yes (Other)
  Sender: FDA-Public Use
  Company Number: CA-ROCHE-428681

PATIENT
  Age: 99 Year
  Sex: Female
  Weight: 63 kg

DRUGS (4)
  1. TAMIFLU [Suspect]
     Indication: DRUG USE FOR UNKNOWN INDICATION
     Route: 048
  2. ELTROXIN [Concomitant]
  3. SENOKOT [Concomitant]
  4. ACETAMINOPHEN [Concomitant]

REACTIONS (1)
  - HAEMATEMESIS [None]
